FAERS Safety Report 7039782 (Version 7)
Quarter: 2013Q1

REPORT INFORMATION
  Report Type: Spontaneous
  Country: US (occurrence: US)
  Receive Date: 20070521
  Receipt Date: 20130204
  Transmission Date: 20140127
  Serious: Yes (Hospitalization)
  Sender: FDA-Public Use
  Company Number: US-BIOGENIDEC-2007BI010163

PATIENT
  Age: 43 Year
  Sex: Male

DRUGS (3)
  1. AVONEX [Suspect]
     Indication: MULTIPLE SCLEROSIS
     Route: 030
     Dates: start: 20050621, end: 20060728
  2. AVONEX [Suspect]
     Indication: MULTIPLE SCLEROSIS
     Route: 030
     Dates: start: 20070921
  3. MEDICATIONS (NOS) [Concomitant]

REACTIONS (23)
  - Neurofibroma [Recovered/Resolved]
  - Intervertebral disc protrusion [Recovered/Resolved]
  - Deep vein thrombosis [Recovered/Resolved]
  - Overweight [Not Recovered/Not Resolved]
  - Anxiety [Unknown]
  - Cerebral atrophy [Unknown]
  - Deafness [Unknown]
  - Ataxia [Unknown]
  - Memory impairment [Unknown]
  - Multiple sclerosis [Unknown]
  - Oedema peripheral [Not Recovered/Not Resolved]
  - Constipation [Unknown]
  - Joint swelling [Unknown]
  - Hyperphagia [Unknown]
  - Sinus disorder [Unknown]
  - Weight increased [Unknown]
  - Weight decreased [Recovered/Resolved]
  - Swelling [Not Recovered/Not Resolved]
  - Feeling abnormal [Not Recovered/Not Resolved]
  - Dyspnoea [Unknown]
  - Pain in extremity [Not Recovered/Not Resolved]
  - Myalgia [Unknown]
  - Headache [Not Recovered/Not Resolved]
